FAERS Safety Report 4293230-3 (Version None)
Quarter: 2004Q1

REPORT INFORMATION
  Report Type: 
  Country: None (occurrence: None)
  Receive Date: 20040210
  Receipt Date: 20040204
  Transmission Date: 20041129
  Serious: Yes (Hospitalization)
  Sender: FDA-Public Use
  Company Number: US-JNJFOC-20031203598

PATIENT
  Age: 56 Year
  Sex: Female
  Weight: 65.7716 kg

DRUGS (5)
  1. ULTRACET [Suspect]
     Indication: BACK PAIN
     Dosage: 3 DOSE (S), IN 1 DAY, ORAL
     Route: 048
     Dates: start: 20031001, end: 20031001
  2. COUMADIN [Suspect]
     Indication: THROMBOSIS PROPHYLAXIS
  3. TOPROL-XL [Concomitant]
  4. HYDROCHLOROTHIAZIDE [Concomitant]
  5. AMBIEN [Concomitant]

REACTIONS (3)
  - DRUG INTERACTION [None]
  - MUSCLE HAEMORRHAGE [None]
  - PROTHROMBIN TIME PROLONGED [None]
